FAERS Safety Report 4819391-2 (Version None)
Quarter: 2005Q4

REPORT INFORMATION
  Report Type: 
  Country: None (occurrence: None)
  Receive Date: 20051103
  Receipt Date: 20040622
  Transmission Date: 20060501
  Serious: Yes (Other)
  Sender: FDA-Public Use
  Company Number: PHNU2004DE02204

PATIENT
  Sex: Male

DRUGS (1)
  1. GLEEVEC [Suspect]
     Indication: CHRONIC MYELOID LEUKAEMIA

REACTIONS (5)
  - AUTOIMMUNE DISORDER [None]
  - DERMATITIS ALLERGIC [None]
  - GRAFT VERSUS HOST DISEASE [None]
  - HYPERSENSITIVITY [None]
  - RASH PAPULAR [None]
